FAERS Safety Report 12698582 (Version 7)
Quarter: 2017Q3

REPORT INFORMATION
  Report Type: Spontaneous
  Country: US (occurrence: US)
  Receive Date: 20160830
  Receipt Date: 20170817
  Transmission Date: 20171127
  Serious: Yes (Other)
  Sender: FDA-Public Use
  Company Number: PHHY2016US118467

PATIENT
  Age: 33 Year
  Sex: Female
  Weight: 58.96 kg

DRUGS (4)
  1. ONDANSETRON HYDROCHLORIDE. [Suspect]
     Active Substance: ONDANSETRON HYDROCHLORIDE
     Indication: HYPEREMESIS GRAVIDARUM
     Dosage: 4 MG, Q12H
     Route: 048
     Dates: start: 20020228, end: 20020422
  2. ZOFRAN [Suspect]
     Active Substance: ONDANSETRON HYDROCHLORIDE
     Indication: VOMITING IN PREGNANCY
     Route: 048
  3. ONDANSETRON HYDROCHLORIDE. [Suspect]
     Active Substance: ONDANSETRON HYDROCHLORIDE
     Indication: HYPEREMESIS GRAVIDARUM
     Dosage: 4 MG, Q12H
     Route: 042
     Dates: start: 20020322, end: 20020905
  4. ZOFRAN [Suspect]
     Active Substance: ONDANSETRON HYDROCHLORIDE
     Indication: PRODUCT USED FOR UNKNOWN INDICATION
     Route: 042

REACTIONS (10)
  - Urinary tract infection [Unknown]
  - Injury [Unknown]
  - Hydronephrosis [Unknown]
  - Flank pain [Unknown]
  - Maternal exposure during pregnancy [Unknown]
  - Renal colic [Unknown]
  - Product use in unapproved indication [Unknown]
  - Premature delivery [Unknown]
  - Emotional distress [Unknown]
  - Nephrolithiasis [Unknown]

NARRATIVE: CASE EVENT DATE: 20020905
